FAERS Safety Report 5570688-0 (Version None)
Quarter: 2007Q4

REPORT INFORMATION
  Report Type: 
  Country: None (occurrence: None)
  Receive Date: 20071221
  Receipt Date: 20071218
  Transmission Date: 20080405
  Serious: Yes (Other)
  Sender: FDA-Public Use
  Company Number: FR-WYE-H01807707

PATIENT
  Age: 60 Year
  Sex: Female

DRUGS (1)
  1. CORDARONE [Suspect]
     Dosage: 200 MG, FREQUENCY UNSPECIFIED
     Route: 048

REACTIONS (1)
  - RETINAL DETACHMENT [None]
